FAERS Safety Report 8200806-7 (Version None)
Quarter: 2012Q1

REPORT INFORMATION
  Report Type: 
  Country: None (occurrence: None)
  Receive Date: 20120222
  Receipt Date: 20120213
  Transmission Date: 20120608
  Serious: Yes (Hospitalization)
  Sender: FDA-Public Use
  Company Number: 2012031148

PATIENT
  Age: 79 Year
  Sex: Male

DRUGS (15)
  1. PRIVIGEN [Suspect]
  2. PRIVIGEN [Suspect]
  3. PREDNISOLON /00016201/ (PREDNISOLONE) [Concomitant]
  4. BISOPROLOL FUMARATE [Concomitant]
  5. PRIVIGEN [Suspect]
  6. AMLODIPIN /00972401/ (AMLODIPINE) [Concomitant]
  7. ALLOPURINOL [Concomitant]
  8. PRIVIGEN [Suspect]
     Indication: CHRONIC LYMPHOCYTIC LEUKAEMIA
     Dosage: 10 G QD, 10 G QD, 10 G QD, 20 G QD, 10 G QD
     Route: 042
     Dates: start: 20101021, end: 20101021
  9. PRIVIGEN [Suspect]
     Indication: CHRONIC LYMPHOCYTIC LEUKAEMIA
     Dosage: 10 G QD, 10 G QD, 10 G QD, 20 G QD, 10 G QD
     Route: 042
     Dates: start: 20110214, end: 20110214
  10. PRIVIGEN [Suspect]
     Indication: CHRONIC LYMPHOCYTIC LEUKAEMIA
     Dosage: 10 G QD, 10 G QD, 10 G QD, 20 G QD, 10 G QD
     Route: 042
     Dates: start: 20110214, end: 20110214
  11. PRIVIGEN [Suspect]
     Indication: CHRONIC LYMPHOCYTIC LEUKAEMIA
     Dosage: 10 G QD, 10 G QD, 10 G QD, 20 G QD, 10 G QD
     Route: 042
     Dates: start: 20101021, end: 20101021
  12. PRIVIGEN [Suspect]
     Indication: CHRONIC LYMPHOCYTIC LEUKAEMIA
     Dosage: 10 G QD, 10 G QD, 10 G QD, 20 G QD, 10 G QD
     Route: 042
     Dates: start: 20101021, end: 20101021
  13. PANTOPRAZOLE [Concomitant]
  14. PRIVIGEN [Suspect]
  15. RAMIPRIL [Concomitant]

REACTIONS (5)
  - BLOOD PRESSURE DECREASED [None]
  - INFUSION RELATED REACTION [None]
  - SEPSIS [None]
  - LUNG INFECTION [None]
  - CHILLS [None]
